FAERS Safety Report 10192859 (Version 1)
Quarter: 2014Q2

REPORT INFORMATION
  Report Type: Spontaneous
  Country: US (occurrence: US)
  Receive Date: 20140523
  Receipt Date: 20140523
  Transmission Date: 20141212
  Serious: No
  Sender: FDA-Public Use
  Company Number: US-009507513-1405USA012388

PATIENT
  Age: 30 Year
  Sex: Female
  Weight: 65.31 kg

DRUGS (2)
  1. NEXPLANON [Suspect]
     Indication: CONTRACEPTION
     Dosage: UNK
     Route: 059
     Dates: start: 20140429
  2. IMPLANON [Concomitant]
     Indication: CONTRACEPTION
     Dosage: UNK
     Route: 059
     Dates: start: 20110318, end: 20140429

REACTIONS (1)
  - Medical device complication [Unknown]
